FAERS Safety Report 12326326 (Version 1)
Quarter: 2016Q2

REPORT INFORMATION
  Report Type: Spontaneous
  Country: US (occurrence: US)
  Receive Date: 20160503
  Receipt Date: 20160503
  Transmission Date: 20160815
  Serious: Yes (Hospitalization, Other)
  Sender: FDA-Public Use
  Company Number: US-SA-2016SA086586

PATIENT
  Age: 4 Year
  Sex: Female
  Weight: 17.9 kg

DRUGS (1)
  1. LUMIZYME [Suspect]
     Active Substance: ALGLUCOSIDASE ALFA
     Indication: GLYCOGEN STORAGE DISEASE TYPE II
     Route: 041

REACTIONS (2)
  - Febrile convulsion [Recovered/Resolved]
  - Systemic candida [Unknown]

NARRATIVE: CASE EVENT DATE: 20160416
